FAERS Safety Report 6618676-7 (Version None)
Quarter: 2010Q1

REPORT INFORMATION
  Report Type: 
  Country: None (occurrence: None)
  Receive Date: 20100308
  Receipt Date: 20100222
  Transmission Date: 20100710
  Serious: Yes (Hospitalization, Other)
  Sender: FDA-Public Use
  Company Number: US-ELI_LILLY_AND_COMPANY-US201002003127

PATIENT
  Sex: Female

DRUGS (13)
  1. FORTEO [Suspect]
     Indication: OSTEOPOROSIS
     Dosage: 20 UG, DAILY (1/D)
     Dates: start: 20090101
  2. FORTEO [Suspect]
     Dosage: 20 UG, DAILY (1/D)
     Dates: start: 20100201
  3. ASPIRIN [Concomitant]
     Dosage: UNK, UNKNOWN
  4. LOPRESSOR [Concomitant]
     Dosage: UNK, UNKNOWN
  5. VITAMIN D [Concomitant]
     Dosage: UNK, UNKNOWN
  6. AMITIZA [Concomitant]
     Dosage: UNK, UNKNOWN
  7. ISOSORBIDE [Concomitant]
     Dosage: UNK, UNKNOWN
  8. COLACE [Concomitant]
     Dosage: UNK, UNKNOWN
  9. OMEPRAZOLE [Concomitant]
     Dosage: 40 MG, UNK
  10. TYLENOL                                 /SCH/ [Concomitant]
     Dosage: 650 MG, UNK
  11. NIFEREX FORTE [Concomitant]
     Dosage: UNK, UNKNOWN
  12. CITRACAL [Concomitant]
     Dosage: UNK, UNKNOWN
  13. ENSURE /01757701/ [Concomitant]
     Dosage: UNK, UNKNOWN

REACTIONS (8)
  - FATIGUE [None]
  - GASTRIC DISORDER [None]
  - HERNIA [None]
  - INCORRECT DOSE ADMINISTERED [None]
  - PAIN [None]
  - PAIN IN EXTREMITY [None]
  - SPINAL COLUMN STENOSIS [None]
  - VOMITING [None]
